FAERS Safety Report 21110880 (Version 1)
Quarter: 2022Q3

REPORT INFORMATION
  Report Type: Spontaneous
  Country: US (occurrence: None)
  Receive Date: 20220720
  Receipt Date: 20220720
  Transmission Date: 20221027
  Serious: Yes (Other)
  Sender: FDA-Public Use
  Company Number: None

PATIENT
  Age: 61 Year
  Sex: Female
  Weight: 56.25 kg

DRUGS (7)
  1. MAGNESIUM CITRATE LEMON [Suspect]
     Active Substance: MAGNESIUM CITRATE
     Indication: Constipation
     Dosage: FREQUENCY : AS NEEDED;?
     Route: 048
     Dates: start: 20220701, end: 20220701
  2. DIAZEPAM [Concomitant]
     Active Substance: DIAZEPAM
  3. LEVOBUPIVACAINE [Concomitant]
     Active Substance: LEVOBUPIVACAINE
  4. MULTI [Concomitant]
  5. VITAMIN B12 [Concomitant]
     Active Substance: CYANOCOBALAMIN
  6. D [Concomitant]
  7. moringa [Concomitant]

REACTIONS (3)
  - Illness [None]
  - Loss of personal independence in daily activities [None]
  - Bedridden [None]

NARRATIVE: CASE EVENT DATE: 20220701
